FAERS Safety Report 21643932 (Version 2)
Quarter: 2022Q4

REPORT INFORMATION
  Report Type: Spontaneous
  Country: IT (occurrence: None)
  Receive Date: 20221125
  Receipt Date: 20221208
  Transmission Date: 20230113
  Serious: Yes (Other)
  Sender: FDA-Public Use
  Company Number: IT-ROCHE-3223788

PATIENT
  Age: 33 Year
  Sex: Male

DRUGS (1)
  1. OCREVUS [Suspect]
     Active Substance: OCRELIZUMAB
     Indication: Multiple sclerosis
     Route: 042
     Dates: start: 20211105

REACTIONS (4)
  - Spinal cord disorder [Unknown]
  - Brain injury [Unknown]
  - Cerebral atrophy [Unknown]
  - Spinal cord injury [Unknown]
